FAERS Safety Report 18206161 (Version 3)
Quarter: 2020Q4

REPORT INFORMATION
  Report Type: Spontaneous
  Country: JP (occurrence: JP)
  Receive Date: 20200827
  Receipt Date: 20201210
  Transmission Date: 20210113
  Serious: Yes (Death, Life-Threatening, Other)
  Sender: FDA-Public Use
  Company Number: JP-TAKEDA-2020TJP017344

PATIENT
  Age: 41 Year
  Sex: Male
  Weight: 48.6 kg

DRUGS (9)
  1. URSO [Concomitant]
     Active Substance: URSODIOL
     Indication: CHOLANGITIS SCLEROSING
     Dosage: 300 MILLIGRAM, TID
     Route: 048
  2. LIPACREON [Concomitant]
     Active Substance: PANCRELIPASE
     Indication: CHOLANGITIS SCLEROSING
     Dosage: 300 MILLIGRAM, TID
     Route: 048
  3. PARIET [Concomitant]
     Active Substance: RABEPRAZOLE SODIUM
     Indication: CHOLANGITIS SCLEROSING
     Dosage: 10 MILLIGRAM, QD
     Route: 048
     Dates: end: 20200319
  4. MIYA-BM [Concomitant]
     Active Substance: CLOSTRIDIUM BUTYRICUM SPORES STRAIN M-55
     Indication: COLITIS ULCERATIVE
     Dosage: 40 MILLIGRAM, TID
     Route: 048
     Dates: start: 20200319
  5. BEZAFIBRATE [Concomitant]
     Active Substance: BEZAFIBRATE
     Indication: CHOLANGITIS SCLEROSING
     Dosage: 200 MILLIGRAM, BID
     Route: 048
     Dates: start: 20200325
  6. PREDNISOLONE. [Concomitant]
     Active Substance: PREDNISOLONE
     Indication: COLITIS ULCERATIVE
     Dosage: 15 MILLIGRAM, QD
     Route: 048
  7. ENTYVIO [Suspect]
     Active Substance: VEDOLIZUMAB
     Indication: COLITIS ULCERATIVE
     Dosage: 300 MILLIGRAM
     Route: 042
     Dates: start: 20200203, end: 20200217
  8. ENTYVIO [Suspect]
     Active Substance: VEDOLIZUMAB
     Dosage: 700 MILLIGRAM
     Route: 042
     Dates: start: 20200417, end: 20200811
  9. TAKECAB [Concomitant]
     Active Substance: VONOPRAZAN FUMARATE
     Indication: CHOLANGITIS SCLEROSING
     Dosage: 20 MILLIGRAM, QD
     Route: 048
     Dates: start: 20200320

REACTIONS (3)
  - Cholangiocarcinoma [Fatal]
  - Cholangitis acute [Recovered/Resolved]
  - Liver abscess [Recovered/Resolved]

NARRATIVE: CASE EVENT DATE: 20200616
